FAERS Safety Report 24548065 (Version 1)
Quarter: 2024Q4

REPORT INFORMATION
  Report Type: Spontaneous
  Country: US (occurrence: US)
  Receive Date: 20241025
  Receipt Date: 20241025
  Transmission Date: 20250115
  Serious: Yes (Other)
  Sender: ALKEM
  Company Number: US-ALKEM LABORATORIES LIMITED-US-ALKEM-2024-20837

PATIENT
  Age: 3 Year

DRUGS (2)
  1. CLOBAZAM [Suspect]
     Active Substance: CLOBAZAM
     Indication: Epilepsy
     Dosage: 0.6 MILLIGRAM/KILOGRAM, QD
     Route: 065
  2. CLOBAZAM [Suspect]
     Active Substance: CLOBAZAM
     Dosage: 0.15 MILLIGRAM/KILOGRAM, QD (RE-INTRODUCED DOSE)
     Route: 065

REACTIONS (1)
  - Hypothermia [Recovered/Resolved]
